FAERS Safety Report 18130256 (Version 1)
Quarter: 2020Q3

REPORT INFORMATION
  Report Type: Spontaneous
  Country: US (occurrence: US)
  Receive Date: 20200810
  Receipt Date: 20200810
  Transmission Date: 20201103
  Serious: Yes (Other)
  Sender: FDA-Public Use
  Company Number: None

PATIENT
  Age: 67 Year
  Sex: Male
  Weight: 94.5 kg

DRUGS (8)
  1. FEBUXOSTAT  40MG [Suspect]
     Active Substance: FEBUXOSTAT
     Indication: GOUT
     Route: 048
  2. VIT C W/D [Concomitant]
  3. ALLPURINOL [Concomitant]
     Active Substance: ALLOPURINOL
  4. ASPIRIN. [Concomitant]
     Active Substance: ASPIRIN
  5. ULORIC [Concomitant]
     Active Substance: FEBUXOSTAT
  6. STATIN [Concomitant]
     Active Substance: UNSPECIFIED INGREDIENT
  7. VITAMIN D3 [Concomitant]
     Active Substance: CHOLECALCIFEROL
  8. CENTRIUM SILVER [Concomitant]

REACTIONS (9)
  - Product substitution issue [None]
  - Hypoaesthesia [None]
  - Peripheral coldness [None]
  - Low density lipoprotein increased [None]
  - Tinnitus [None]
  - Hypoacusis [None]
  - Angiopathy [None]
  - Headache [None]
  - Visual impairment [None]

NARRATIVE: CASE EVENT DATE: 20200209
